FAERS Safety Report 8165262-6 (Version None)
Quarter: 2012Q1

REPORT INFORMATION
  Report Type: 
  Country: None (occurrence: None)
  Receive Date: 20120222
  Receipt Date: 20120222
  Transmission Date: 20120608
  Serious: Yes (Hospitalization, Disabling, Congenital Anomaly, Other)
  Sender: FDA-Public Use
  Company Number: None

PATIENT
  Sex: Female
  Weight: 158.759 kg

DRUGS (3)
  1. SEROQUEL [Suspect]
     Dosage: 200MG OR HIGHER
  2. THORAZINE [Suspect]
     Indication: PARANOIA
     Dosage: 200 TO 100 MG
     Dates: start: 19860706
  3. ABILIFY [Suspect]
     Indication: BIPOLAR DISORDER
     Dosage: 20 TO 15 MG ALL AT BEDTIME
     Dates: start: 20030218

REACTIONS (2)
  - HEADACHE [None]
  - HALLUCINATION, AUDITORY [None]
